FAERS Safety Report 15382627 (Version 1)
Quarter: 2018Q3

REPORT INFORMATION
  Report Type: Spontaneous
  Country: CA (occurrence: CA)
  Receive Date: 20180913
  Receipt Date: 20180913
  Transmission Date: 20181010
  Serious: Yes (Life-Threatening, Hospitalization)
  Sender: FDA-Public Use
  Company Number: CA-PFIZER INC-002-0945-M0100008

PATIENT
  Age: 76 Year
  Sex: Female

DRUGS (5)
  1. LORAZEPAM. [Concomitant]
     Active Substance: LORAZEPAM
     Dosage: UNK
     Route: 048
  2. NEURONTIN [Suspect]
     Active Substance: GABAPENTIN
     Indication: DEPRESSION
     Dosage: 100 MG, 3X/DAY
     Route: 048
     Dates: start: 20001207
  3. PINAVERIUM [Concomitant]
     Active Substance: PINAVERIUM BROMIDE
     Dosage: UNK
     Route: 048
  4. TRANYLCYPROMINE [Concomitant]
     Active Substance: TRANYLCYPROMINE
     Dosage: UNK
     Route: 048
     Dates: start: 1982
  5. NEURONTIN [Suspect]
     Active Substance: GABAPENTIN
     Indication: ANXIETY

REACTIONS (4)
  - Myocardial infarction [Recovered/Resolved with Sequelae]
  - Blood creatine phosphokinase increased [Recovered/Resolved]
  - Abdominal pain [Recovering/Resolving]
  - Syncope [Recovered/Resolved with Sequelae]

NARRATIVE: CASE EVENT DATE: 200101
